FAERS Safety Report 11855022 (Version 2)
Quarter: 2016Q1

REPORT INFORMATION
  Report Type: Spontaneous
  Country: RU (occurrence: RU)
  Receive Date: 20151221
  Receipt Date: 20160120
  Transmission Date: 20160526
  Serious: Yes (Life-Threatening, Hospitalization, Other)
  Sender: FDA-Public Use
  Company Number: RU-BAYER-2015-485304

PATIENT
  Age: 31 Year
  Sex: Female
  Weight: 60 kg

DRUGS (1)
  1. GADOVIST [Suspect]
     Active Substance: GADOBUTROL
     Indication: NUCLEAR MAGNETIC RESONANCE IMAGING ABDOMINAL
     Dosage: UNK
     Route: 042
     Dates: start: 20151209

REACTIONS (11)
  - Extrasystoles [None]
  - Seizure [Recovering/Resolving]
  - Eye swelling [Recovering/Resolving]
  - Erythema of eyelid [Recovering/Resolving]
  - Respiratory disorder [Recovering/Resolving]
  - Loss of consciousness [None]
  - Asthenia [None]
  - Nausea [Recovering/Resolving]
  - Apparent death [Recovered/Resolved]
  - Eyelids pruritus [Recovering/Resolving]
  - Vomiting [Recovering/Resolving]

NARRATIVE: CASE EVENT DATE: 20151209
